FAERS Safety Report 17532738 (Version 1)
Quarter: 2020Q1

REPORT INFORMATION
  Report Type: Spontaneous
  Country: US (occurrence: US)
  Receive Date: 20200312
  Receipt Date: 20200312
  Transmission Date: 20200409
  Serious: No
  Sender: FDA-Public Use
  Company Number: US-PFIZER INC-2020106798

PATIENT
  Age: 77 Year
  Sex: Female
  Weight: 69.4 kg

DRUGS (1)
  1. CELEBREX [Suspect]
     Active Substance: CELECOXIB
     Indication: ARTHRITIS
     Dosage: 200 MG, AS NEEDED (200 MG EACH. ONE CAPSULE AS NEEDED ONCE A DAY BY MOUTH)
     Route: 048

REACTIONS (1)
  - Pain [Not Recovered/Not Resolved]
